FAERS Safety Report 8179779-1 (Version None)
Quarter: 2012Q1

REPORT INFORMATION
  Report Type: 
  Country: None (occurrence: None)
  Receive Date: 20120229
  Receipt Date: 20120216
  Transmission Date: 20120608
  Serious: Yes (Hospitalization, Other)
  Sender: FDA-Public Use
  Company Number: 2012AP000128

PATIENT
  Age: 58 Year
  Sex: Male
  Weight: 90 kg

DRUGS (7)
  1. MESALAMINE [Concomitant]
  2. CLINDAMYCIN [Concomitant]
  3. METOCLOPRAMIDE [Suspect]
     Indication: IMPAIRED GASTRIC EMPTYING
     Dosage: 10 MG;BID;PO
     Route: 048
  4. NEBIVOLOL [Concomitant]
  5. VALSARTAN [Concomitant]
  6. VENLAFAXINE [Suspect]
     Indication: PRODUCT USED FOR UNKNOWN INDICATION
  7. SERTRALINE HYDROCHLORIDE [Suspect]
     Indication: PRODUCT USED FOR UNKNOWN INDICATION

REACTIONS (23)
  - CEREBRAL DISORDER [None]
  - BUNDLE BRANCH BLOCK LEFT [None]
  - NEUROLEPTIC MALIGNANT SYNDROME [None]
  - MENTAL STATUS CHANGES [None]
  - RESTLESSNESS [None]
  - RENAL FAILURE ACUTE [None]
  - CLOSTRIDIUM DIFFICILE COLITIS [None]
  - DYSARTHRIA [None]
  - ABNORMAL BEHAVIOUR [None]
  - MUSCLE RIGIDITY [None]
  - BLOOD CREATINE PHOSPHOKINASE INCREASED [None]
  - CONFUSIONAL STATE [None]
  - HAEMOGLOBIN DECREASED [None]
  - HYPOTENSION [None]
  - DELUSION [None]
  - OXYGEN SATURATION DECREASED [None]
  - DIARRHOEA [None]
  - CONVULSION [None]
  - LETHARGY [None]
  - MUSCULOSKELETAL STIFFNESS [None]
  - METABOLIC ACIDOSIS [None]
  - HAEMATOCRIT DECREASED [None]
  - FEELING JITTERY [None]
